FAERS Safety Report 6822861-9 (Version None)
Quarter: 2010Q3

REPORT INFORMATION
  Report Type: 
  Country: None (occurrence: None)
  Receive Date: 20100707
  Receipt Date: 20100707
  Transmission Date: 20110219
  Serious: Yes (Hospitalization)
  Sender: FDA-Public Use
  Company Number: None

PATIENT
  Sex: Female

DRUGS (1)
  1. ONDANSETRON [Suspect]
     Dosage: 4 MG QID PRN PO
     Route: 048
     Dates: start: 20100527, end: 20100527

REACTIONS (3)
  - MALAISE [None]
  - NAUSEA [None]
  - VOMITING [None]
